FAERS Safety Report 4633609-0 (Version None)
Quarter: 2005Q2

REPORT INFORMATION
  Report Type: 
  Country: None (occurrence: None)
  Receive Date: 20050401
  Receipt Date: 20050217
  Transmission Date: 20051028
  Serious: No
  Sender: FDA-Public Use
  Company Number: 2005BI004421

PATIENT
  Age: 31 Year
  Sex: Female
  Weight: 48.9885 kg

DRUGS (1)
  1. NATALIZUMAB [Suspect]
     Indication: MULTIPLE SCLEROSIS
     Dosage: 300 MG; QM; IV
     Route: 042
     Dates: start: 20050207, end: 20050207

REACTIONS (9)
  - ASTHENIA [None]
  - FATIGUE [None]
  - INFLUENZA LIKE ILLNESS [None]
  - NAUSEA [None]
  - NEURALGIA [None]
  - PRURITUS [None]
  - SOMNOLENCE [None]
  - STRESS [None]
  - TENSION [None]
